FAERS Safety Report 10269022 (Version 1)
Quarter: 2014Q2

REPORT INFORMATION
  Report Type: Spontaneous
  Country: US (occurrence: US)
  Receive Date: 20140630
  Receipt Date: 20140630
  Transmission Date: 20141212
  Serious: Yes (Other)
  Sender: FDA-Public Use
  Company Number: US-PFIZER INC-2014178141

PATIENT
  Age: 70 Year
  Sex: Male

DRUGS (1)
  1. AZITHROMYCIN [Suspect]
     Indication: EAR INFECTION
     Dosage: UNK

REACTIONS (4)
  - Tumour pain [Unknown]
  - Diarrhoea [Unknown]
  - Pruritus [Unknown]
  - Pyrexia [Unknown]
